FAERS Safety Report 8172407-0 (Version None)
Quarter: 2012Q1

REPORT INFORMATION
  Report Type: 
  Country: None (occurrence: None)
  Receive Date: 20120224
  Receipt Date: 20120224
  Transmission Date: 20120608
  Serious: Yes (Life-Threatening)
  Sender: FDA-Public Use
  Company Number: None

PATIENT
  Sex: Male
  Weight: 84.369 kg

DRUGS (1)
  1. DEPAKOTE [Suspect]
     Indication: COMPLEX PARTIAL SEIZURES
     Dosage: 1500 MG QHS PO SUMMER 2008
     Route: 048

REACTIONS (2)
  - COMPLEX PARTIAL SEIZURES [None]
  - PRODUCT SUBSTITUTION ISSUE [None]
